FAERS Safety Report 4294625-4 (Version None)
Quarter: 2004Q1

REPORT INFORMATION
  Report Type: 
  Country: None (occurrence: None)
  Receive Date: 20040211
  Receipt Date: 20040121
  Transmission Date: 20041129
  Serious: Yes (Other)
  Sender: FDA-Public Use
  Company Number: USA040157062

PATIENT
  Age: 65 Year
  Sex: Female
  Weight: 80 kg

DRUGS (5)
  1. HUMULIN N [Suspect]
     Indication: DIABETES MELLITUS NON-INSULIN-DEPENDENT
     Dates: start: 19870101
  2. ASACOL [Concomitant]
  3. XANAX [Concomitant]
  4. PLAVIX [Concomitant]
  5. FLAGYL [Concomitant]

REACTIONS (7)
  - ARTHRITIS [None]
  - BLADDER CANCER [None]
  - COLITIS ULCERATIVE [None]
  - CONDITION AGGRAVATED [None]
  - NEPHRECTOMY [None]
  - PAIN [None]
  - RENAL CELL CARCINOMA STAGE UNSPECIFIED [None]
